FAERS Safety Report 4984540-2 (Version None)
Quarter: 2006Q2

REPORT INFORMATION
  Report Type: 
  Country: None (occurrence: None)
  Receive Date: 20060421
  Receipt Date: 20060405
  Transmission Date: 20061013
  Serious: Yes (Life-Threatening)
  Sender: FDA-Public Use
  Company Number: DSA_28059_2006

PATIENT
  Age: 74 Year
  Sex: Female

DRUGS (6)
  1. ATIVAN [Suspect]
     Dosage: 5 MG ONCE PO
     Route: 048
     Dates: start: 20050525, end: 20050525
  2. VASOTEC [Suspect]
     Dosage: 50 MG ONCE UNK
     Route: 065
     Dates: start: 20050525, end: 20050525
  3. PANTOLOC /01263201/ [Suspect]
     Dosage: 200 MG ONCE UNK
     Route: 065
     Dates: start: 20050525, end: 20050525
  4. DIGOXIN [Suspect]
     Dosage: 1.25 MG ONCE UNK
     Route: 065
     Dates: start: 20050525, end: 20050525
  5. EFFEXOR /01233801 [Suspect]
     Dosage: 375 MG ONCE UNK
     Route: 065
     Dates: start: 20050525, end: 20050525
  6. SEROQUEL [Suspect]
     Dosage: 250 MG ONCE UNK
     Route: 065
     Dates: start: 20050525, end: 20050525

REACTIONS (4)
  - ATRIOVENTRICULAR BLOCK FIRST DEGREE [None]
  - COMA [None]
  - DRUG LEVEL INCREASED [None]
  - INTENTIONAL OVERDOSE [None]
